FAERS Safety Report 10257275 (Version 1)
Quarter: 2014Q2

REPORT INFORMATION
  Report Type: Not Available
  Country: GB (occurrence: GB)
  Receive Date: 20140625
  Receipt Date: 20140625
  Transmission Date: 20141212
  Serious: Yes (Hospitalization)
  Sender: FDA-Public Use
  Company Number: GB-LUPIN PHARMACEUTICALS INC.-2014-01175

PATIENT
  Age: 30 Year
  Sex: Female

DRUGS (2)
  1. QUETIAPINE 25MG FILM-COATED TABLETS [Suspect]
     Indication: SCHIZOPHRENIA
     Route: 065
  2. QUETIAPINE 25MG FILM-COATED TABLETS [Suspect]
     Indication: BIPOLAR DISORDER

REACTIONS (1)
  - Mental impairment [Unknown]
